FAERS Safety Report 12620369 (Version 1)
Quarter: 2016Q3

REPORT INFORMATION
  Report Type: Spontaneous
  Country: US (occurrence: US)
  Receive Date: 20160803
  Receipt Date: 20160803
  Transmission Date: 20161109
  Serious: No
  Sender: FDA-Public Use
  Company Number: US-ASTRAZENECA-2016SE69716

PATIENT
  Age: 62 Year
  Sex: Female
  Weight: 64.6 kg

DRUGS (2)
  1. ANASTRAZOLE [Suspect]
     Active Substance: ANASTROZOLE
     Indication: BREAST CANCER FEMALE
     Route: 048
     Dates: start: 20160601
  2. SEVERAL MEDICATIONS [Concomitant]

REACTIONS (2)
  - Oral pain [Not Recovered/Not Resolved]
  - Stomatitis [Not Recovered/Not Resolved]
